FAERS Safety Report 6110358-3 (Version None)
Quarter: 2009Q1

REPORT INFORMATION
  Report Type: 
  Country: None (occurrence: None)
  Receive Date: 20090310
  Receipt Date: 20090304
  Transmission Date: 20090719
  Serious: Yes (Hospitalization)
  Sender: FDA-Public Use
  Company Number: US-ABBOTT-09P-163-0560407-00

PATIENT
  Sex: Male

DRUGS (1)
  1. KALETRA [Suspect]
     Indication: HIV INFECTION
     Dosage: UNKNOWN DOSE
     Route: 048
     Dates: start: 20080901

REACTIONS (3)
  - DIZZINESS [None]
  - TOXOPLASMOSIS [None]
  - VOMITING [None]
